FAERS Safety Report 25946725 (Version 1)
Quarter: 2025Q4

REPORT INFORMATION
  Report Type: Spontaneous
  Country: US (occurrence: US)
  Receive Date: 20251022
  Receipt Date: 20251022
  Transmission Date: 20260118
  Serious: No
  Sender: TOLMAR
  Company Number: US-Tolmar-TLM-2025-06287

PATIENT

DRUGS (3)
  1. ELIGARD [Suspect]
     Active Substance: LEUPROLIDE ACETATE
     Indication: Prostate cancer
     Dosage: EXP: 31-DEC-2026; JAN-2027; DEC-2026 ?SERIAL NUMBER: 670213378847?GTIN :00362935227106?DOSE NOT ADMI
  2. ELIGARD [Suspect]
     Active Substance: LEUPROLIDE ACETATE
     Dosage: REPLACEMENT DOSE GIVEN
  3. DEVICE [Suspect]
     Active Substance: DEVICE
     Indication: Prostate cancer
     Dosage: EXP: 31-DEC-2026; JAN-2027; DEC-2026 ?SERIAL NUMBER: 670213378847?GTIN :00362935227106

REACTIONS (3)
  - Product packaging quantity issue [Unknown]
  - Wrong technique in product usage process [Unknown]
  - Intercepted product preparation error [Unknown]
